FAERS Safety Report 4994922-0 (Version None)
Quarter: 2006Q2

REPORT INFORMATION
  Report Type: 
  Country: None (occurrence: None)
  Receive Date: 20060508
  Receipt Date: 20060426
  Transmission Date: 20061013
  Serious: Yes (Death, Hospitalization, Other)
  Sender: FDA-Public Use
  Company Number: PHBS2006IT06251

PATIENT
  Age: 9 Year
  Sex: Male
  Weight: 18.5 kg

DRUGS (17)
  1. CYCLOSPORINE [Suspect]
     Indication: BONE MARROW TRANSPLANT
     Dosage: 3 MG/KG/DAY
     Route: 042
  2. MYCOPHENOLATE MOFETIL [Concomitant]
  3. AMPHOTERICIN B [Suspect]
  4. BUSULFAN [Concomitant]
     Dosage: 16 MG/KG/D
  5. THIOTEPA [Concomitant]
     Dosage: 5 MG/KG/D
  6. CYCLOPHOSPHAMIDE [Concomitant]
     Dosage: 200 MG/KG/D
  7. THYMOGLOBULIN [Concomitant]
     Dosage: 15 MG/KG /D
  8. CYCLOSPORINE [Suspect]
     Dosage: 3 MG/KG /DAY
     Route: 048
  9. CYCLOSPORINE [Suspect]
     Route: 048
  10. PREDNISONE [Concomitant]
     Dosage: 0.5 MG/KG/DAY
  11. POTASSIUM [Concomitant]
     Indication: HYPOKALAEMIA
  12. TOBRAMYCIN [Concomitant]
  13. AMIKACIN [Concomitant]
  14. TEICOPLANIN [Concomitant]
  15. VANCOMYCIN [Concomitant]
  16. ACYCLOVIR [Concomitant]
  17. FOSCARNET [Concomitant]

REACTIONS (28)
  - BLOOD BILIRUBIN INCREASED [None]
  - BLOOD CREATININE INCREASED [None]
  - BRAIN DAMAGE [None]
  - CANDIDA SEPSIS [None]
  - CANDIDIASIS [None]
  - CONCOMITANT DISEASE PROGRESSION [None]
  - COUGH [None]
  - CYSTITIS HAEMORRHAGIC [None]
  - EPSTEIN-BARR VIRUS INFECTION [None]
  - GRAFT VERSUS HOST DISEASE [None]
  - GRAND MAL CONVULSION [None]
  - HAEMATURIA [None]
  - HEPATOSPLENOMEGALY [None]
  - HYPOKALAEMIA [None]
  - INTERSTITIAL LUNG DISEASE [None]
  - LYMPHADENOPATHY [None]
  - LYMPHOMA [None]
  - NASAL DISORDER [None]
  - PHARYNGEAL NEOPLASM [None]
  - PNEUMONIA [None]
  - PSEUDOMONAS INFECTION [None]
  - PYREXIA [None]
  - RESPIRATORY FAILURE [None]
  - SEPTIC SHOCK [None]
  - SINUSITIS [None]
  - STAPHYLOCOCCAL SEPSIS [None]
  - TRACHEOSTOMY [None]
  - TRANSAMINASES INCREASED [None]
